FAERS Safety Report 10089787 (Version 1)
Quarter: 2014Q2

REPORT INFORMATION
  Report Type: Spontaneous
  Country: GB (occurrence: GB)
  Receive Date: 20140421
  Receipt Date: 20140421
  Transmission Date: 20141212
  Serious: Yes (Other)
  Sender: FDA-Public Use
  Company Number: GB-SA-2014SA044193

PATIENT
  Age: 33 Year
  Sex: Male
  Weight: 76.2 kg

DRUGS (1)
  1. RIFINAH [Suspect]
     Indication: LATENT TUBERCULOSIS
     Dosage: 1 IN THE MORNING.
     Route: 048

REACTIONS (3)
  - Secretion discharge [Not Recovered/Not Resolved]
  - Scar [Not Recovered/Not Resolved]
  - Acne [Not Recovered/Not Resolved]
